FAERS Safety Report 18345036 (Version 2)
Quarter: 2021Q4

REPORT INFORMATION
  Report Type: Spontaneous
  Country: US (occurrence: US)
  Receive Date: 20201005
  Receipt Date: 20211020
  Transmission Date: 20220303
  Serious: No
  Sender: FDA-Public Use
  Company Number: US-ALLERGAN-2019467US

PATIENT
  Sex: Male

DRUGS (4)
  1. LINZESS [Suspect]
     Active Substance: LINACLOTIDE
     Indication: Constipation
     Dosage: 290 ?G, QD
  2. LINZESS [Suspect]
     Active Substance: LINACLOTIDE
     Dosage: 290 ?G, QD
     Dates: end: 20210619
  3. LINZESS [Suspect]
     Active Substance: LINACLOTIDE
     Dosage: 290 ?G, QD
     Dates: start: 2018, end: 20200528
  4. METAMUCIL [Suspect]
     Active Substance: PLANTAGO SEED
     Indication: Constipation
     Dosage: UNK, BID

REACTIONS (11)
  - Incorrect dose administered [Unknown]
  - Serum ferritin abnormal [Unknown]
  - Faeces hard [Recovered/Resolved]
  - Red blood cell count abnormal [Unknown]
  - Haemoglobin abnormal [Unknown]
  - Blood iron abnormal [Unknown]
  - Haemorrhoidal haemorrhage [Not Recovered/Not Resolved]
  - Mean platelet volume abnormal [Unknown]
  - Diarrhoea [Recovering/Resolving]
  - Diarrhoea [Unknown]
  - Drug ineffective [Unknown]

NARRATIVE: CASE EVENT DATE: 20180101
